FAERS Safety Report 24659863 (Version 1)
Quarter: 2024Q4

REPORT INFORMATION
  Report Type: Spontaneous
  Country: ES (occurrence: ES)
  Receive Date: 20241125
  Receipt Date: 20241125
  Transmission Date: 20250114
  Serious: Yes (Death, Hospitalization)
  Sender: FRESENIUS KABI
  Company Number: ES-ROCHE-2952685

PATIENT
  Age: 78 Year
  Sex: Male
  Weight: 68 kg

DRUGS (29)
  1. PEMETREXED [Suspect]
     Active Substance: PEMETREXED
     Indication: Non-small cell lung cancer metastatic
     Dosage: FORM OF ADMINISTRATION: INFUSION
     Route: 042
     Dates: start: 20210614
  2. PEMETREXED [Suspect]
     Active Substance: PEMETREXED
     Dosage: START DATE OF MOST RECENT DOSE OF STUDY DRUG PRIOR TO AE 20-OCT-2021?FORM OF ADMINISTRATION: INFUSIO
     Route: 042
  3. PLACEBO [Suspect]
     Active Substance: PLACEBO
     Indication: Non-small cell lung cancer metastatic
     Dosage: DATE OF MOST RECENT DOSE OF STUDY DRUG PRIOR TO AE AND SAE ONSET :20/OCT/2021?FOA: INFUSION
     Route: 042
     Dates: start: 20210614
  4. PEMBROLIZUMAB [Suspect]
     Active Substance: PEMBROLIZUMAB
     Indication: Non-small cell lung cancer metastatic
     Dosage: DATE OF MOST RECENT DOSE OF STUDY DRUG PRIOR TO AE AND SAE ONSET :20/OCT/2021?FOA: INFUSION
     Route: 042
     Dates: start: 20210614
  5. PEMBROLIZUMAB [Suspect]
     Active Substance: PEMBROLIZUMAB
     Route: 042
  6. CARBOPLATIN [Suspect]
     Active Substance: CARBOPLATIN
     Indication: Non-small cell lung cancer metastatic
     Dosage: FOA: INFUSION
     Route: 042
     Dates: start: 20210614
  7. CARBOPLATIN [Suspect]
     Active Substance: CARBOPLATIN
     Dosage: START DATE OF MOST RECENT DOSE OF STUDY DRUG PRIOR TO AE: 18/AUG/2021?FOA: INFUSION
     Route: 042
  8. ATEZOLIZUMAB [Suspect]
     Active Substance: ATEZOLIZUMAB
     Indication: Non-small cell lung cancer metastatic
     Dosage: DATE OF MOST RECENT DOSE OF STUDY DRUG PRIOR TO AE AND SAE ONSET :20/OCT/2021?FOA: INFUSION
     Route: 041
     Dates: start: 20210614
  9. SIMVASTATIN [Concomitant]
     Active Substance: SIMVASTATIN
     Indication: Hypercholesterolaemia
     Dosage: FOA: TABLET
     Route: 048
     Dates: start: 2005
  10. OMEPRAZOLE [Concomitant]
     Active Substance: OMEPRAZOLE
     Indication: Product used for unknown indication
     Dosage: ROA: CAPSULES
     Route: 048
     Dates: start: 2005, end: 20211103
  11. OMEPRAZOLE [Concomitant]
     Active Substance: OMEPRAZOLE
     Dosage: FOA: TABLET
     Route: 048
     Dates: start: 20211104, end: 20211119
  12. OMEPRAZOLE [Concomitant]
     Active Substance: OMEPRAZOLE
     Dosage: FOA: INJECTION
     Route: 042
     Dates: start: 20211120, end: 20211121
  13. OMEPRAZOLE [Concomitant]
     Active Substance: OMEPRAZOLE
     Dosage: FOA: INJECTION
     Route: 042
     Dates: start: 20211122, end: 20211125
  14. OMEPRAZOLE [Concomitant]
     Active Substance: OMEPRAZOLE
     Dosage: FOA: INJECTION
     Route: 042
     Dates: start: 20211126, end: 20211201
  15. ASPIRIN [Concomitant]
     Active Substance: ASPIRIN
     Indication: Product used for unknown indication
     Dosage: FOA: TABLET
     Route: 048
     Dates: start: 2017, end: 20211130
  16. RAMIPRIL [Concomitant]
     Active Substance: RAMIPRIL
     Indication: Hypertension
     Dosage: FOA: TABLET
     Route: 048
     Dates: start: 2017
  17. INSULIN GLARGINE [Concomitant]
     Active Substance: INSULIN GLARGINE
     Indication: Diabetes mellitus
     Dosage: FOA: INJECTION
     Route: 058
     Dates: start: 2019, end: 20211103
  18. LINAGLIPTIN [Concomitant]
     Active Substance: LINAGLIPTIN
     Indication: Diabetes mellitus
     Dosage: FOA: TABLET
     Route: 048
     Dates: start: 2012, end: 20211103
  19. FOLIC ACID [Concomitant]
     Active Substance: FOLIC ACID
     Indication: Product used for unknown indication
     Dosage: FOA: TABLET
     Route: 048
     Dates: start: 20210511
  20. ATORVASTATIN [Concomitant]
     Active Substance: ATORVASTATIN
     Indication: Hypercholesterolaemia
     Dosage: FOA: TABLET
     Route: 048
     Dates: start: 20211104, end: 20211114
  21. LORAZEPAM [Concomitant]
     Active Substance: LORAZEPAM
     Indication: Prophylaxis
     Dosage: FOA: TABLET
     Route: 048
     Dates: start: 20211104, end: 20211114
  22. INSULINA TOUJEO [Concomitant]
     Indication: Diabetes mellitus
     Dosage: FOA: INJECTION
     Route: 058
     Dates: start: 20211104, end: 20211114
  23. INSULINA TOUJEO [Concomitant]
     Dosage: FOA: INJECTION
     Route: 058
     Dates: start: 20211123, end: 20211201
  24. NOVORAPID [Concomitant]
     Active Substance: INSULIN ASPART
     Indication: Diabetes mellitus
     Dosage: FOA: INJECTION
     Route: 058
     Dates: start: 20211104, end: 20211130
  25. INSULIN NOS [Concomitant]
     Active Substance: INSULIN NOS
     Indication: Diabetes mellitus
     Dosage: FOA: INJECTION
     Route: 042
     Dates: start: 20211107, end: 20211114
  26. FUROSEMIDE [Concomitant]
     Active Substance: FUROSEMIDE
     Indication: Prophylaxis
     Dosage: FOA: INJECTION
     Route: 042
     Dates: start: 20211114, end: 20211125
  27. QUETIAPINE [Concomitant]
     Active Substance: QUETIAPINE
     Indication: Prophylaxis
     Dosage: FOA: TABLET
     Route: 048
     Dates: start: 20211114, end: 20211129
  28. CHLORPROMAZINE [Concomitant]
     Active Substance: CHLORPROMAZINE
     Indication: Prophylaxis
     Dosage: FOA: TABLET
     Route: 048
     Dates: start: 20211120, end: 20211130
  29. CYANOCOBALAMIN [Concomitant]
     Active Substance: CYANOCOBALAMIN
     Indication: Anaemia prophylaxis
     Dosage: TABLET
     Route: 048
     Dates: start: 20211117, end: 20211117

REACTIONS (1)
  - Interstitial lung disease [Fatal]

NARRATIVE: CASE EVENT DATE: 20211104
